FAERS Safety Report 5242668-6 (Version None)
Quarter: 2007Q1

REPORT INFORMATION
  Report Type: 
  Country: None (occurrence: None)
  Receive Date: 20070221
  Receipt Date: 20070220
  Transmission Date: 20070707
  Serious: Yes (Hospitalization)
  Sender: FDA-Public Use
  Company Number: US-RB-005304-07

PATIENT
  Age: 44 Year
  Sex: Male

DRUGS (1)
  1. SUBOXONE [Suspect]
     Dosage: 4MG, 4MG, 4MG, 4MG
     Route: 060
     Dates: start: 20070219, end: 20070219

REACTIONS (2)
  - ABDOMINAL PAIN [None]
  - PANCREATITIS [None]
